FAERS Safety Report 9536592 (Version 1)
Quarter: 2013Q2

REPORT INFORMATION
  Report Type: Spontaneous
  Country: US (occurrence: None)
  Receive Date: 20130517
  Receipt Date: 20130517
  Transmission Date: 20140414
  Serious: Yes (Other)
  Sender: FDA-Public Use
  Company Number: 1000043333

PATIENT
  Age: 34 Year
  Sex: Female
  Weight: 65.7 kg

DRUGS (7)
  1. VIIBRYD [Suspect]
     Indication: DEPRESSION
     Dosage: 40 MG ( 40 MG, 1 IN 1 D), ORAL
     Route: 048
     Dates: start: 201211
  2. VIIBRYD [Suspect]
     Indication: ANXIETY
     Dosage: 40 MG ( 40 MG, 1 IN 1 D), ORAL
     Route: 048
     Dates: start: 201211
  3. SEROQUEL ( QUETIAPINE FUMARATE) (QUETIAPINE FUMARATE) [Concomitant]
  4. XANAX ( ALPRAZOLAM) [Concomitant]
  5. NEURONTIN ( GABAPENTIN) ( GABAPENTIN) [Concomitant]
  6. FLEXERIL ( CYCLOBENZAPRINE) (CYCLOBENZAPRINE) [Concomitant]
  7. NEXIUM ( ESOMEPRAZOLE) (ESOMEPRAZOLE) [Concomitant]

REACTIONS (1)
  - Drug ineffective [None]
